FAERS Safety Report 23049553 (Version 3)
Quarter: 2023Q4

REPORT INFORMATION
  Report Type: Report from Study
  Country: ES (occurrence: ES)
  Receive Date: 20231010
  Receipt Date: 20231101
  Transmission Date: 20240110
  Serious: Yes (Hospitalization)
  Sender: FDA-Public Use
  Company Number: ES-Eisai Medical Research-EC-2022-106482

PATIENT
  Age: 47 Year
  Sex: Female
  Weight: 62.0 kg

DRUGS (5)
  1. LENVATINIB [Suspect]
     Active Substance: LENVATINIB
     Indication: Renal cell carcinoma
     Route: 048
     Dates: start: 20210930, end: 20211102
  2. LENVATINIB [Suspect]
     Active Substance: LENVATINIB
     Dosage: STARTING DOSE AT 20 MG, FLUCTUATED DOSAGE
     Route: 048
     Dates: start: 20211110
  3. FAVEZELIMAB [Suspect]
     Active Substance: FAVEZELIMAB
     Indication: Renal cell carcinoma
     Dosage: MK-4280 800 MG (+) PEMBROLIZUMAB (MK-3475) 200 MG (MK-4280A)
     Route: 042
     Dates: start: 20210930, end: 20211020
  4. PEMBROLIZUMAB [Suspect]
     Active Substance: PEMBROLIZUMAB
     Dosage: MK-4280 800 MG (+) PEMBROLIZUMAB (MK-3475) 200 MG (MK-4280A)
     Route: 042
     Dates: start: 20211110
  5. MOTILIUM [Concomitant]
     Active Substance: DOMPERIDONE
     Dates: start: 202109

REACTIONS (2)
  - Amylase increased [Recovered/Resolved]
  - Lipase increased [Recovered/Resolved]

NARRATIVE: CASE EVENT DATE: 20211108
